FAERS Safety Report 11365514 (Version 1)
Quarter: 2015Q3

REPORT INFORMATION
  Report Type: Spontaneous
  Country: CA (occurrence: CA)
  Receive Date: 20150811
  Receipt Date: 20150811
  Transmission Date: 20151125
  Serious: Yes (Death)
  Sender: FDA-Public Use
  Company Number: CA-009507513-1508CAN003807

PATIENT
  Age: 79 Year
  Sex: Male
  Weight: 100 kg

DRUGS (7)
  1. JANUMET [Suspect]
     Active Substance: METFORMIN HYDROCHLORIDE\SITAGLIPTIN PHOSPHATE
     Indication: DIABETES MELLITUS
     Dosage: 1 DF, BID
     Route: 048
  2. IMDUR [Concomitant]
     Active Substance: ISOSORBIDE MONONITRATE
     Route: 065
  3. ENALAPRIL MALEATE. [Concomitant]
     Active Substance: ENALAPRIL MALEATE
     Route: 065
  4. INSULIN HUMAN, ISOPHANE [Concomitant]
     Active Substance: INSULIN HUMAN
     Route: 065
  5. INSULIN-TORONTO [Concomitant]
     Route: 065
  6. PRO AAS [Concomitant]
     Route: 065
  7. COLCHICINE. [Concomitant]
     Active Substance: COLCHICINE
     Route: 065

REACTIONS (9)
  - Disseminated intravascular coagulation [Fatal]
  - Multi-organ failure [Fatal]
  - Troponin increased [Fatal]
  - Blood creatine phosphokinase increased [Fatal]
  - Hypotension [Fatal]
  - Pancreatitis [Fatal]
  - Acute kidney injury [Fatal]
  - Respiratory failure [Fatal]
  - Shock [Fatal]
